FAERS Safety Report 5012238-3 (Version None)
Quarter: 2006Q2

REPORT INFORMATION
  Report Type: 
  Country: None (occurrence: None)
  Receive Date: 20060410
  Receipt Date: 20060220
  Transmission Date: 20061013
  Serious: Yes (Congenital Anomaly)
  Sender: FDA-Public Use
  Company Number: 06P-163-0325601-00

PATIENT

DRUGS (1)
  1. DEPAKOTE [Suspect]

REACTIONS (4)
  - CONGENITAL ANOMALY [None]
  - HYDROCEPHALUS [None]
  - SPINA BIFIDA [None]
  - TALIPES [None]
